FAERS Safety Report 16599304 (Version 3)
Quarter: 2019Q3

REPORT INFORMATION
  Report Type: Report from Study
  Country: ZA (occurrence: ZA)
  Receive Date: 20190719
  Receipt Date: 20190807
  Transmission Date: 20191004
  Serious: Yes (Other)
  Sender: FDA-Public Use
  Company Number: PHHY2018ZA149144

PATIENT
  Age: 30 Year
  Sex: Female

DRUGS (5)
  1. TUVIGIN [Suspect]
     Active Substance: FINGOLIMOD HYDROCHLORIDE
     Indication: MULTIPLE SCLEROSIS
     Dosage: 0.5 MG, QD
     Route: 048
     Dates: start: 20181031
  2. URBANOL [Concomitant]
     Active Substance: CLOBAZAM
     Indication: PRODUCT USED FOR UNKNOWN INDICATION
     Dosage: UNK
     Route: 065
  3. RITALINA [Suspect]
     Active Substance: METHYLPHENIDATE HYDROCHLORIDE
     Indication: PRODUCT USED FOR UNKNOWN INDICATION
     Dosage: 2 DF, QD
     Route: 065
  4. MINERVA [Concomitant]
     Active Substance: CYPROTERONE ACETATE\ETHINYL ESTRADIOL
     Indication: PRODUCT USED FOR UNKNOWN INDICATION
     Dosage: UNK
     Route: 065
  5. COPAXONE [Concomitant]
     Active Substance: GLATIRAMER ACETATE
     Indication: PRODUCT USED FOR UNKNOWN INDICATION
     Dosage: UNK
     Route: 065

REACTIONS (35)
  - Ill-defined disorder [Unknown]
  - Drug ineffective [Unknown]
  - Sinusitis [Unknown]
  - Irritability [Unknown]
  - Productive cough [Unknown]
  - General physical condition abnormal [Recovering/Resolving]
  - Migraine [Unknown]
  - Rhinorrhoea [Unknown]
  - Upper-airway cough syndrome [Unknown]
  - Pyrexia [Unknown]
  - Nausea [Recovering/Resolving]
  - Blood pressure fluctuation [Unknown]
  - Tension headache [Recovering/Resolving]
  - Hypertension [Unknown]
  - Dysuria [Recovering/Resolving]
  - Blood potassium increased [Unknown]
  - Discomfort [Unknown]
  - Nasopharyngitis [Unknown]
  - Headache [Recovering/Resolving]
  - Sinus headache [Unknown]
  - Pruritus [Unknown]
  - Lymphocyte count decreased [Unknown]
  - Heart rate increased [Unknown]
  - Heart rate irregular [Unknown]
  - Nervousness [Unknown]
  - Blood chloride increased [Unknown]
  - Dizziness [Not Recovered/Not Resolved]
  - Fatigue [Recovering/Resolving]
  - Bronchitis [Unknown]
  - Diarrhoea [Recovering/Resolving]
  - Chest discomfort [Recovering/Resolving]
  - Neutrophil count increased [Unknown]
  - C-reactive protein increased [Unknown]
  - Influenza [Unknown]
  - Dyspnoea [Recovering/Resolving]

NARRATIVE: CASE EVENT DATE: 20190126
